FAERS Safety Report 9514835 (Version 1)
Quarter: 2013Q3

REPORT INFORMATION
  Report Type: Spontaneous
  Country: CA (occurrence: CA)
  Receive Date: 20130911
  Receipt Date: 20130911
  Transmission Date: 20140515
  Serious: Yes (Hospitalization, Other)
  Sender: FDA-Public Use
  Company Number: CA-BAYER-2013-108781

PATIENT
  Age: 30 Year
  Sex: Female

DRUGS (1)
  1. BETASERON [Suspect]
     Indication: RELAPSING-REMITTING MULTIPLE SCLEROSIS
     Dosage: 0.5 MG, QOD
     Dates: start: 1999

REACTIONS (5)
  - Multiple sclerosis relapse [Not Recovered/Not Resolved]
  - Infection [None]
  - Dyspnoea [None]
  - Therapeutic product ineffective [None]
  - Incorrect dose administered [None]
